FAERS Safety Report 14353703 (Version 1)
Quarter: 2018Q1

REPORT INFORMATION
  Report Type: Spontaneous
  Country: TR (occurrence: TR)
  Receive Date: 20180105
  Receipt Date: 20180105
  Transmission Date: 20180509
  Serious: Yes (Hospitalization)
  Sender: FDA-Public Use
  Company Number: TR-BION-006864

PATIENT
  Age: 19 Year
  Sex: Female

DRUGS (1)
  1. VALPROIC ACID. [Suspect]
     Active Substance: VALPROIC ACID
     Indication: EPILEPSY
     Dosage: REDUCE THE DOSE OF VALPROIC ACID FROM 500 MG T.I.D TO 500 MG B.I.D

REACTIONS (1)
  - Atrioventricular block [Recovered/Resolved]
